FAERS Safety Report 24014352 (Version 1)
Quarter: 2024Q2

REPORT INFORMATION
  Report Type: Spontaneous
  Country: US (occurrence: None)
  Receive Date: 20240626
  Receipt Date: 20240626
  Transmission Date: 20240716
  Serious: Yes (Death, Other)
  Sender: FDA-Public Use
  Company Number: US-Unichem Pharmaceuticals (USA) Inc-UCM202406-000743

PATIENT
  Age: 18 Year
  Sex: Male

DRUGS (2)
  1. QUETIAPINE [Suspect]
     Active Substance: QUETIAPINE
     Indication: Product used for unknown indication
     Dosage: UNKNOWN
  2. QUETIAPINE [Suspect]
     Active Substance: QUETIAPINE
     Dosage: UNKNOWN

REACTIONS (7)
  - Areflexia [Fatal]
  - Brain hypoxia [Fatal]
  - Decorticate posture [Fatal]
  - Unresponsive to stimuli [Fatal]
  - Drug level increased [Fatal]
  - Hypotension [Fatal]
  - Sedation complication [Fatal]
